FAERS Safety Report 7244598-7 (Version None)
Quarter: 2011Q1

REPORT INFORMATION
  Report Type: 
  Country: None (occurrence: None)
  Receive Date: 20110125
  Receipt Date: 20110118
  Transmission Date: 20110831
  Serious: Yes (Other)
  Sender: FDA-Public Use
  Company Number: US-RB-020953-11

PATIENT
  Age: 32 Year
  Sex: Male

DRUGS (3)
  1. ZOLOFT [Suspect]
     Indication: DEPRESSION
     Dosage: DOSING DETAILS UNKNOWN
     Route: 048
     Dates: start: 20101201, end: 20101220
  2. BUSPAR [Suspect]
     Indication: PRODUCT USED FOR UNKNOWN INDICATION
     Dosage: DOSING DETAILS UNKNOWN
     Route: 048
     Dates: start: 20101201, end: 20101220
  3. SUBOXONE [Suspect]
     Indication: DRUG DEPENDENCE
     Route: 060
     Dates: start: 20080601

REACTIONS (3)
  - FALL [None]
  - HEAD INJURY [None]
  - CONVULSION [None]
